FAERS Safety Report 7198420-8 (Version None)
Quarter: 2010Q4

REPORT INFORMATION
  Report Type: 
  Country: None (occurrence: None)
  Receive Date: 20101227
  Receipt Date: 20101215
  Transmission Date: 20110411
  Serious: Yes (Other)
  Sender: FDA-Public Use
  Company Number: PHHY2010JP82058

PATIENT
  Age: 45 Year
  Sex: Male

DRUGS (6)
  1. PERDIPINE [Interacting]
     Indication: HYPERTENSION
  2. VOLTAREN [Interacting]
     Dosage: 50 MG, UNK
     Route: 054
  3. CALBLOCK [Suspect]
     Indication: HYPERTENSION
     Dosage: 16 MG DAILY, UNK
  4. OLMETEC [Suspect]
     Indication: HYPERTENSION
     Dosage: 20 MG DAILY, UNK
  5. THIAMYLAL [Concomitant]
  6. PHENOBAL [Concomitant]

REACTIONS (6)
  - BLOOD CREATININE INCREASED [None]
  - BLOOD PRESSURE DECREASED [None]
  - BLOOD UREA INCREASED [None]
  - DRUG INTERACTION [None]
  - RENAL FAILURE ACUTE [None]
  - URINE OUTPUT DECREASED [None]
